FAERS Safety Report 7573411-3 (Version None)
Quarter: 2011Q2

REPORT INFORMATION
  Report Type: 
  Country: None (occurrence: None)
  Receive Date: 20110627
  Receipt Date: 20110420
  Transmission Date: 20111010
  Serious: Yes (Other)
  Sender: FDA-Public Use
  Company Number: A0923786A

PATIENT
  Age: 23 Year
  Sex: Female
  Weight: 90.5 kg

DRUGS (2)
  1. LAMOTRGINE [Suspect]
     Indication: EPILEPSY
  2. LAMICTAL [Suspect]
     Indication: EPILEPSY
     Dosage: 350MG PER DAY
     Route: 048
     Dates: start: 20110101, end: 20110401

REACTIONS (2)
  - RASH [None]
  - CONVULSION [None]
